FAERS Safety Report 9453022 (Version 2)
Quarter: 2013Q3

REPORT INFORMATION
  Report Type: Spontaneous
  Country: JP (occurrence: JP)
  Receive Date: 20130812
  Receipt Date: 20130822
  Transmission Date: 20140515
  Serious: Yes (Hospitalization)
  Sender: FDA-Public Use
  Company Number: JP-EISAI INC-E2090-02793-SPO-JP

PATIENT
  Age: 76 Year
  Sex: Female

DRUGS (8)
  1. TRERIEF [Suspect]
     Indication: PARKINSON^S DISEASE
     Dosage: 25 MG DAILY
     Route: 048
  2. NEODOPASTON [Concomitant]
     Indication: PARKINSON^S DISEASE
     Dosage: 600 MG DAILY
     Route: 048
  3. METLIGINE [Concomitant]
     Indication: ORTHOSTATIC HYPOTENSION
     Dosage: 6 MG DAILY
     Route: 048
  4. SEROQUEL [Concomitant]
     Indication: SCHIZOPHRENIA
     Dosage: 25 MG DAILY
     Route: 048
  5. SERENACE [Concomitant]
     Indication: PSYCHIATRIC SYMPTOM
     Dosage: 5 MG DAILY
  6. BUP-4 [Concomitant]
     Indication: POLLAKIURIA
     Dosage: 20 MG DAILY
     Route: 048
  7. EVISTA [Concomitant]
     Indication: OSTEOPOROSIS
     Dosage: 60 MG DAILY
     Route: 048
  8. LIPITOR [Concomitant]
     Indication: DYSLIPIDAEMIA
     Dosage: 10 MG DAILY
     Route: 048

REACTIONS (5)
  - Hallucination, visual [Recovering/Resolving]
  - Hallucination [Recovering/Resolving]
  - Poriomania [Recovering/Resolving]
  - Delirium [Recovering/Resolving]
  - Fall [Recovering/Resolving]
